FAERS Safety Report 8551027-X (Version None)
Quarter: 2012Q3

REPORT INFORMATION
  Report Type: 
  Country: None (occurrence: None)
  Receive Date: 20120730
  Receipt Date: 20120720
  Transmission Date: 20120928
  Serious: Yes (Hospitalization)
  Sender: FDA-Public Use
  Company Number: FR-BAXTER-2012BAX012032

PATIENT
  Sex: Female

DRUGS (2)
  1. EPIRUBICIN HYDROCHLORIDE [Suspect]
     Route: 048
     Dates: start: 20120319, end: 20120502
  2. CYCLOPHOSPHAMIDE [Suspect]
     Route: 042
     Dates: start: 20120319, end: 20120502

REACTIONS (1)
  - LEFT VENTRICULAR DYSFUNCTION [None]
